FAERS Safety Report 14473009 (Version 1)
Quarter: 2018Q1

REPORT INFORMATION
  Report Type: Spontaneous
  Country: US (occurrence: US)
  Receive Date: 20180201
  Receipt Date: 20180201
  Transmission Date: 20180509
  Serious: No
  Sender: FDA-Public Use
  Company Number: US-HORIZON-DUE-0006-2018

PATIENT
  Age: 82 Year
  Sex: Female

DRUGS (5)
  1. DUEXIS [Suspect]
     Active Substance: FAMOTIDINE\IBUPROFEN
     Indication: PAIN
     Dosage: PRESCRIBED AS TID; TAKEN AS 1 TABLET AT BEDTIME
     Route: 048
     Dates: start: 20171206
  2. CARVEDILOL. [Concomitant]
     Active Substance: CARVEDILOL
     Dosage: 6.25 MG BID
  3. FUROSEMID [Concomitant]
     Active Substance: FUROSEMIDE
     Dosage: 20 MG ONCE A DAY
  4. LISINOPRIL. [Concomitant]
     Active Substance: LISINOPRIL
     Dosage: 2.5 MG ONCE A DAY
  5. SPIRONOLACTONE. [Concomitant]
     Active Substance: SPIRONOLACTONE
     Dosage: 25 MG ONCE A DAY

REACTIONS (3)
  - Intentional product misuse [Unknown]
  - Off label use [Unknown]
  - Insomnia [Unknown]

NARRATIVE: CASE EVENT DATE: 201712
